FAERS Safety Report 10142863 (Version 1)
Quarter: 2014Q2

REPORT INFORMATION
  Report Type: Spontaneous
  Country: BR (occurrence: BR)
  Receive Date: 20140430
  Receipt Date: 20140430
  Transmission Date: 20141212
  Serious: Yes (Death)
  Sender: FDA-Public Use
  Company Number: BR-ELI_LILLY_AND_COMPANY-BR201404008870

PATIENT
  Age: 91 Year
  Sex: Female
  Weight: 55 kg

DRUGS (5)
  1. HUMALOG MIX 25 [Suspect]
     Indication: BLOOD GLUCOSE INCREASED
     Dosage: 8 IU, EACH MORNING
     Route: 058
     Dates: start: 20140301, end: 20140328
  2. HUMALOG MIX 25 [Suspect]
     Dosage: 10 IU, EACH EVENING
     Route: 058
     Dates: start: 20140301, end: 20140328
  3. DORMONID                           /00634101/ [Concomitant]
     Indication: PRODUCT USED FOR UNKNOWN INDICATION
     Dosage: UNK, UNKNOWN
     Route: 065
  4. ALPRAZOLAM [Concomitant]
     Indication: RELAXATION THERAPY
     Dosage: UNK, UNKNOWN
     Route: 065
  5. TYLENOL                            /00020001/ [Concomitant]
     Indication: PRODUCT USED FOR UNKNOWN INDICATION
     Dosage: 40 GTT, UNKNOWN
     Route: 065

REACTIONS (6)
  - Death [Fatal]
  - Gait disturbance [Unknown]
  - Infrequent bowel movements [Unknown]
  - Hypophagia [Unknown]
  - Lethargy [Unknown]
  - Asthenia [Unknown]
